FAERS Safety Report 24022840 (Version 1)
Quarter: 2024Q2

REPORT INFORMATION
  Report Type: Report from Study
  Country: CL (occurrence: CL)
  Receive Date: 20240627
  Receipt Date: 20240627
  Transmission Date: 20240716
  Serious: No
  Sender: FDA-Public Use
  Company Number: CL-ROCHE-3460278

PATIENT
  Age: 85 Year
  Sex: Male
  Weight: 80.0 kg

DRUGS (3)
  1. VABYSMO [Suspect]
     Active Substance: FARICIMAB\FARICIMAB-SVOA
     Indication: Retinal vascular disorder
     Route: 050
     Dates: start: 20231108
  2. VABYSMO [Suspect]
     Active Substance: FARICIMAB\FARICIMAB-SVOA
     Indication: Age-related macular degeneration
  3. AVASTIN [Suspect]
     Active Substance: BEVACIZUMAB
     Indication: Retinal vascular disorder
     Dosage: 6 OR 7 INJECTIONS
     Route: 050
     Dates: start: 20231108

REACTIONS (5)
  - Off label use [Unknown]
  - Off label use [Unknown]
  - Off label use [Unknown]
  - Malaise [Unknown]
  - Visual impairment [Unknown]
